FAERS Safety Report 9135316 (Version 1)
Quarter: 2013Q1

REPORT INFORMATION
  Report Type: Spontaneous
  Country: US (occurrence: US)
  Receive Date: 20130304
  Receipt Date: 20130304
  Transmission Date: 20140127
  Serious: Yes (Other)
  Sender: FDA-Public Use
  Company Number: US-PFIZER INC-2013069314

PATIENT
  Age: 12 Year
  Sex: Female
  Weight: 45.81 kg

DRUGS (1)
  1. BENEFIX [Suspect]
     Indication: FACTOR IX DEFICIENCY
     Dosage: 42.6 IU/KG, WEEKLY (2X/WEEK)

REACTIONS (2)
  - Haemorrhage [Unknown]
  - Off label use [Unknown]
